FAERS Safety Report 8407981-X (Version None)
Quarter: 2012Q2

REPORT INFORMATION
  Report Type: 
  Country: None (occurrence: None)
  Receive Date: 20120601
  Receipt Date: 20120601
  Transmission Date: 20120825
  Serious: Yes (Other)
  Sender: FDA-Public Use
  Company Number: None

PATIENT
  Sex: Male

DRUGS (1)
  1. AVEENO BABY CALMING COMFORT LOTION [Suspect]
     Indication: DRY SKIN PROPHYLAXIS
     Dosage: TOPICAL
     Route: 061

REACTIONS (3)
  - STAPHYLOCOCCAL BACTERAEMIA [None]
  - HAEMATOCHEZIA [None]
  - SLEEP DISORDER [None]
